FAERS Safety Report 8350283-0 (Version None)
Quarter: 2012Q2

REPORT INFORMATION
  Report Type: 
  Country: None (occurrence: None)
  Receive Date: 20120510
  Receipt Date: 20120503
  Transmission Date: 20120825
  Serious: Yes (Disabling)
  Sender: FDA-Public Use
  Company Number: US-BAYER-2012-039104

PATIENT
  Age: 26 Year
  Sex: Female
  Weight: 68.027 kg

DRUGS (3)
  1. CLINDAMYCIN [Concomitant]
     Dosage: APP 1 TO 2 TIMES A DAY
     Dates: start: 20030129
  2. YASMIN [Suspect]
     Dosage: UNK
     Dates: start: 20021101, end: 20030130
  3. DIFFERIN [Concomitant]
     Dosage: 0.1 %, HS
     Dates: start: 20030129

REACTIONS (8)
  - ANXIETY [None]
  - CEREBROVASCULAR ACCIDENT [None]
  - BRAIN INJURY [None]
  - PAIN [None]
  - INJURY [None]
  - THROMBOSIS [None]
  - EMOTIONAL DISTRESS [None]
  - GENERAL PHYSICAL HEALTH DETERIORATION [None]
